FAERS Safety Report 4762741-6 (Version None)
Quarter: 2005Q3

REPORT INFORMATION
  Report Type: 
  Country: None (occurrence: None)
  Receive Date: 20050901
  Receipt Date: 20050617
  Transmission Date: 20060218
  Serious: No
  Sender: FDA-Public Use
  Company Number: 200511227BWH

PATIENT
  Age: 56 Year
  Sex: Male

DRUGS (8)
  1. LEVITRA [Suspect]
     Indication: ERECTILE DYSFUNCTION
     Dosage: ORAL
     Route: 048
  2. REMERON [Concomitant]
  3. MULTI-VITAMINS [Concomitant]
  4. CALCIUM GLUCONATE [Concomitant]
  5. PENTASA [Concomitant]
  6. ENTOCORT [Concomitant]
  7. PREDNISONE [Concomitant]
  8. ACTONEL [Concomitant]

REACTIONS (4)
  - ABDOMINAL PAIN [None]
  - CROHN'S DISEASE [None]
  - FREQUENT BOWEL MOVEMENTS [None]
  - PROCTALGIA [None]
